FAERS Safety Report 8190553-2 (Version None)
Quarter: 2012Q1

REPORT INFORMATION
  Report Type: 
  Country: None (occurrence: None)
  Receive Date: 20120307
  Receipt Date: 20120227
  Transmission Date: 20120608
  Serious: Yes (Other)
  Sender: FDA-Public Use
  Company Number: US-ROCHE-1020279

PATIENT
  Sex: Male
  Weight: 78.088 kg

DRUGS (4)
  1. TYLENOL-500 [Concomitant]
  2. ACCUTANE [Suspect]
     Dates: start: 20000401, end: 20000701
  3. BACTROBAN [Concomitant]
  4. ACCUTANE [Suspect]
     Indication: ACNE
     Dates: start: 19980101, end: 20000618

REACTIONS (4)
  - CROHN'S DISEASE [None]
  - IRRITABLE BOWEL SYNDROME [None]
  - COLITIS ULCERATIVE [None]
  - DEPRESSION [None]
